FAERS Safety Report 9349577 (Version 2)
Quarter: 2013Q3

REPORT INFORMATION
  Report Type: Spontaneous
  Country: DE (occurrence: DE)
  Receive Date: 20130614
  Receipt Date: 20130801
  Transmission Date: 20140515
  Serious: Yes (Other)
  Sender: FDA-Public Use
  Company Number: DE-GLAXOSMITHKLINE-D0080006A

PATIENT
  Sex: Female

DRUGS (1)
  1. VIANI [Suspect]
     Route: 055

REACTIONS (1)
  - Pneumonia [Unknown]
